FAERS Safety Report 14225443 (Version 2)
Quarter: 2017Q4

REPORT INFORMATION
  Report Type: Spontaneous
  Country: US (occurrence: US)
  Receive Date: 20171127
  Receipt Date: 20171221
  Transmission Date: 20180321
  Serious: No
  Sender: FDA-Public Use
  Company Number: US-PFIZER INC-2017508848

PATIENT
  Age: 62 Year
  Sex: Male

DRUGS (1)
  1. XANAX [Suspect]
     Active Substance: ALPRAZOLAM
     Indication: ANXIETY
     Dosage: UNK, AS NEEDED (0.5 THREE TIMES PER DAY (TID)
     Route: 048

REACTIONS (2)
  - Drug hypersensitivity [Unknown]
  - Hallucination [Unknown]
